FAERS Safety Report 21022685 (Version 2)
Quarter: 2023Q1

REPORT INFORMATION
  Report Type: Spontaneous
  Country: US (occurrence: US)
  Receive Date: 20220629
  Receipt Date: 20230103
  Transmission Date: 20230418
  Serious: Yes (Other)
  Sender: FDA-Public Use
  Company Number: US-MLMSERVICE-20220620-3621318-1

PATIENT
  Age: 18 Year
  Sex: Male

DRUGS (11)
  1. IRINOTECAN HYDROCHLORIDE [Suspect]
     Active Substance: IRINOTECAN HYDROCHLORIDE
     Indication: Chemotherapy
     Dosage: UNK
  2. TEMODAR [Suspect]
     Active Substance: TEMOZOLOMIDE
     Indication: Metastases to the mediastinum
     Dosage: UNK
  3. TEMODAR [Suspect]
     Active Substance: TEMOZOLOMIDE
     Indication: Metastases to soft tissue
  4. TEMODAR [Suspect]
     Active Substance: TEMOZOLOMIDE
     Indication: Metastases to heart
  5. TEMODAR [Suspect]
     Active Substance: TEMOZOLOMIDE
     Indication: Desmoplastic small round cell tumour
  6. TEMODAR [Suspect]
     Active Substance: TEMOZOLOMIDE
     Indication: Metastases to bone
  7. TEMODAR [Suspect]
     Active Substance: TEMOZOLOMIDE
     Indication: Metastases to lung
  8. TEMODAR [Suspect]
     Active Substance: TEMOZOLOMIDE
     Indication: Chemotherapy
  9. LITHIUM [Concomitant]
     Active Substance: LITHIUM
     Indication: Bipolar disorder
     Dosage: UNK
  10. ESCITALOPRAM [Concomitant]
     Active Substance: ESCITALOPRAM OXALATE
     Indication: Bipolar disorder
     Dosage: UNK
  11. ARIPIPRAZOLE [Concomitant]
     Active Substance: ARIPIPRAZOLE
     Indication: Bipolar disorder
     Dosage: UNK

REACTIONS (2)
  - Ileus [Unknown]
  - Intestinal obstruction [Unknown]
